FAERS Safety Report 7318834-2 (Version None)
Quarter: 2011Q1

REPORT INFORMATION
  Report Type: 
  Country: None (occurrence: None)
  Receive Date: 20110228
  Receipt Date: 20101018
  Transmission Date: 20110831
  Serious: No
  Sender: FDA-Public Use
  Company Number: A0877257A

PATIENT
  Age: 53 Year
  Sex: Female

DRUGS (20)
  1. SYNTHROID [Concomitant]
  2. VITAMIN D [Concomitant]
  3. ASPIRIN [Concomitant]
  4. METFORMIN [Concomitant]
  5. BLACK COHOSH [Concomitant]
  6. LAMICTAL [Concomitant]
  7. DYCLONINE [Concomitant]
  8. CRESTOR [Concomitant]
  9. FISH OIL [Concomitant]
  10. COPAXONE [Concomitant]
  11. LASIX [Concomitant]
  12. IMITREX [Suspect]
     Indication: MIGRAINE
     Dosage: 6MG AS REQUIRED
     Route: 058
     Dates: start: 20100301
  13. VITAMIN B-12 [Concomitant]
  14. DOXEPIN [Concomitant]
  15. PROZAC [Concomitant]
  16. ZETIA [Concomitant]
  17. NICOTINYL TARTRATE [Concomitant]
  18. DIAZEPAM [Concomitant]
  19. PREVACID [Concomitant]
  20. B2 [Concomitant]

REACTIONS (4)
  - HEADACHE [None]
  - PRODUCT QUALITY ISSUE [None]
  - BURNING SENSATION [None]
  - SENSORY DISTURBANCE [None]
